FAERS Safety Report 25818234 (Version 1)
Quarter: 2025Q3

REPORT INFORMATION
  Report Type: Spontaneous
  Country: US (occurrence: US)
  Receive Date: 20250918
  Receipt Date: 20250918
  Transmission Date: 20251021
  Serious: Yes (Hospitalization)
  Sender: NOVO NORDISK
  Company Number: US-NOVOPROD-1522638

PATIENT
  Sex: Male

DRUGS (2)
  1. WEGOVY [Suspect]
     Active Substance: SEMAGLUTIDE
     Dosage: 2.4 MG, QW
     Dates: end: 20250825
  2. WEGOVY [Suspect]
     Active Substance: SEMAGLUTIDE
     Indication: Weight control

REACTIONS (2)
  - Knee arthroplasty [Unknown]
  - Inappropriate schedule of product administration [Unknown]

NARRATIVE: CASE EVENT DATE: 20250908
